FAERS Safety Report 4920506-6 (Version None)
Quarter: 2006Q1

REPORT INFORMATION
  Report Type: 
  Country: None (occurrence: None)
  Receive Date: 20060223
  Receipt Date: 20060213
  Transmission Date: 20060701
  Serious: Yes (Other)
  Sender: FDA-Public Use
  Company Number: US-KINGPHARMUSA00001-K200600223

PATIENT
  Age: 52 Year
  Sex: Female

DRUGS (7)
  1. SYNERCID [Suspect]
     Indication: OSTEOMYELITIS
     Dosage: 750 MG, EVERY 8 HOURS
     Route: 042
  2. IMIPENEM [Concomitant]
     Dosage: 250 MG, EVERY 6 HOURS
     Route: 042
  3. IMIPENEM [Concomitant]
     Dosage: 500 MG, EVERY 6 HOURS
     Route: 042
  4. AMLODIPINE [Concomitant]
  5. ESCITALOPRAM OXALATE [Concomitant]
  6. COLCHICINE [Concomitant]
  7. DOCUSATE (DOCUSATE) [Concomitant]

REACTIONS (11)
  - ANAEMIA [None]
  - ARTHRALGIA [None]
  - DIZZINESS [None]
  - FATIGUE [None]
  - HAEMOGLOBIN DECREASED [None]
  - MALAISE [None]
  - MYALGIA [None]
  - NAUSEA [None]
  - PALLOR [None]
  - RETICULOCYTOPENIA [None]
  - VOMITING [None]
